FAERS Safety Report 4490751-5 (Version None)
Quarter: 2004Q4

REPORT INFORMATION
  Report Type: 
  Country: None (occurrence: None)
  Receive Date: 20041102
  Receipt Date: 20041027
  Transmission Date: 20050328
  Serious: Yes (Hospitalization)
  Sender: FDA-Public Use
  Company Number: GB-BRISTOL-MYERS SQUIBB COMPANY-12747267

PATIENT
  Sex: Female
  Weight: 80 kg

DRUGS (4)
  1. CYCLOPHOSPHAMIDE [Suspect]
     Indication: BREAST CANCER
     Dates: start: 20040804, end: 20040804
  2. PACLITAXEL [Suspect]
     Indication: BREAST CANCER
     Dates: start: 20040923, end: 20040923
  3. EPIRUBICIN [Suspect]
     Indication: BREAST CANCER
     Dates: start: 20040804, end: 20040804
  4. GEMCITABINE [Suspect]
     Indication: BREAST CANCER
     Dates: start: 20040923, end: 20040923

REACTIONS (1)
  - DEEP VEIN THROMBOSIS [None]
